FAERS Safety Report 23915344 (Version 6)
Quarter: 2025Q1

REPORT INFORMATION
  Report Type: Spontaneous
  Country: US (occurrence: US)
  Receive Date: 20240529
  Receipt Date: 20250103
  Transmission Date: 20250409
  Serious: Yes (Other)
  Sender: BRISTOL-MYERS SQUIBB COMPANY
  Company Number: US-BRISTOL-MYERS SQUIBB COMPANY-2024-085506

PATIENT
  Age: 82 Year
  Sex: Female

DRUGS (3)
  1. REVLIMID [Suspect]
     Active Substance: LENALIDOMIDE
     Indication: Plasma cell myeloma
     Route: 048
  2. REVLIMID [Suspect]
     Active Substance: LENALIDOMIDE
     Route: 048
  3. ACYCLOVIR [Concomitant]
     Active Substance: ACYCLOVIR

REACTIONS (8)
  - Dysgeusia [Unknown]
  - Product dose omission issue [Unknown]
  - Neuropathy peripheral [Recovering/Resolving]
  - Peripheral swelling [Not Recovered/Not Resolved]
  - Hyperkeratosis [Unknown]
  - Impaired healing [Unknown]
  - Squamous cell carcinoma [Unknown]
  - Pruritus [Unknown]

NARRATIVE: CASE EVENT DATE: 20240101
